FAERS Safety Report 7420591-6 (Version None)
Quarter: 2011Q2

REPORT INFORMATION
  Report Type: 
  Country: None (occurrence: None)
  Receive Date: 20110408
  Receipt Date: 20110328
  Transmission Date: 20111010
  Serious: Yes (Life-Threatening, Hospitalization)
  Sender: FDA-Public Use
  Company Number: FK201100601

PATIENT
  Age: 57 Year
  Sex: Female

DRUGS (8)
  1. CEFUROXIME [Suspect]
     Indication: JOINT ARTHROPLASTY
     Dosage: INTRAVENOUS
     Route: 042
     Dates: start: 20101104, end: 20101211
  2. METHADONE (METHADONE) (METHADONE) [Concomitant]
  3. OXYCONTIN (OXYCODONE HYDROCHLORIDE) (OXYCODONE HYDROCHLORIDE) [Concomitant]
  4. VENLAFAXINE HCL [Concomitant]
  5. ZOPICLONE (ZOPICLONE) (ZOPICLONE) [Concomitant]
  6. TRIFLUOPERAZINE (TRIFLUOPERAZINE) (TRIFLUOPERAZINE) [Concomitant]
  7. OMEPRAZOLE [Concomitant]
  8. PREGABALIN (PREGABALIN) (PREGABALIN) [Concomitant]

REACTIONS (4)
  - RENAL FAILURE [None]
  - BLOOD POTASSIUM INCREASED [None]
  - DRUG SPECIFIC ANTIBODY PRESENT [None]
  - INTRAVASCULAR HAEMOLYSIS [None]
